FAERS Safety Report 9105821 (Version 1)
Quarter: 2013Q1

REPORT INFORMATION
  Report Type: Spontaneous
  Country: US (occurrence: US)
  Receive Date: 20130220
  Receipt Date: 20130220
  Transmission Date: 20140127
  Serious: No
  Sender: FDA-Public Use
  Company Number: US-PFIZER INC-2013063530

PATIENT
  Sex: Male
  Weight: 97.5 kg

DRUGS (4)
  1. NEURONTIN [Suspect]
     Indication: BACK PAIN
     Dosage: 300 MG, 3X/DAY
     Dates: start: 2005, end: 2006
  2. MORPHINE [Concomitant]
     Indication: BREAKTHROUGH PAIN
     Dosage: 15 MG, 2X/DAY
     Route: 048
  3. MORPHINE [Concomitant]
     Indication: BREAKTHROUGH PAIN
     Dosage: 15MG 2-3 TIMES A DAY
     Route: 048
  4. FLEXERIL [Concomitant]
     Indication: MUSCLE RELAXANT THERAPY
     Dosage: 5 MG, 1X/DAY

REACTIONS (1)
  - Local swelling [Not Recovered/Not Resolved]
